FAERS Safety Report 10554809 (Version 1)
Quarter: 2014Q4

REPORT INFORMATION
  Report Type: Report from Study
  Country: CZ (occurrence: CZ)
  Receive Date: 20141030
  Receipt Date: 20141030
  Transmission Date: 20150529
  Serious: Yes (Other)
  Sender: FDA-Public Use
  Company Number: CZ-BAYER-2014-157027

PATIENT
  Age: 35 Year
  Sex: Female
  Weight: 61 kg

DRUGS (1)
  1. MIRENA [Suspect]
     Active Substance: LEVONORGESTREL
     Indication: CONTRACEPTION
     Dosage: 20 MCG/24HR, QD
     Route: 015
     Dates: start: 20140130

REACTIONS (3)
  - Sarcoidosis [Not Recovered/Not Resolved]
  - Vaginal haemorrhage [None]
  - Cyst [Recovering/Resolving]

NARRATIVE: CASE EVENT DATE: 2014
